FAERS Safety Report 10018144 (Version 2)
Quarter: 2014Q1

REPORT INFORMATION
  Report Type: Spontaneous
  Country: US (occurrence: US)
  Receive Date: 20140318
  Receipt Date: 20140328
  Transmission Date: 20141002
  Serious: Yes (Hospitalization)
  Sender: FDA-Public Use
  Company Number: US-SA-2014SA033130

PATIENT
  Age: 43 Year
  Sex: Male

DRUGS (4)
  1. FABRAZYME [Suspect]
     Indication: FABRY^S DISEASE
     Route: 042
     Dates: start: 20030722
  2. ACETAMINOPHEN [Concomitant]
     Indication: PREMEDICATION
     Dosage: 30 MINUTES BEFORE FABRAZYME
     Route: 048
  3. PREDNISONE [Concomitant]
     Indication: PREMEDICATION
     Route: 065
  4. BENADRYL [Concomitant]
     Route: 048

REACTIONS (4)
  - Cardiac failure congestive [Unknown]
  - Oedema [Unknown]
  - Abdominal pain [Unknown]
  - Fall [Unknown]
